FAERS Safety Report 5031779-6 (Version None)
Quarter: 2006Q2

REPORT INFORMATION
  Report Type: 
  Country: None (occurrence: None)
  Receive Date: 20060619
  Receipt Date: 20060602
  Transmission Date: 20061013
  Serious: No
  Sender: FDA-Public Use
  Company Number: 35017

PATIENT
  Age: 20 Day
  Sex: Male

DRUGS (3)
  1. ISOPTO ATROPINE  0.5% [Suspect]
     Dosage: 2GTTS ONCE
     Route: 047
     Dates: start: 20060512, end: 20060512
  2. TROPICAMIDE [Concomitant]
  3. DOMPERIDONE [Concomitant]

REACTIONS (1)
  - INTESTINAL OBSTRUCTION [None]
